FAERS Safety Report 9537134 (Version 3)
Quarter: 2014Q2

REPORT INFORMATION
  Report Type: Report from Study
  Country: FR (occurrence: FR)
  Receive Date: 20130919
  Receipt Date: 20140414
  Transmission Date: 20141212
  Serious: Yes (Hospitalization)
  Sender: FDA-Public Use
  Company Number: FR-ABBVIE-13P-056-1142197-00

PATIENT
  Age: 48 Year
  Sex: Female

DRUGS (9)
  1. HUMIRA [Suspect]
     Indication: RHEUMATOID ARTHRITIS
     Route: 058
     Dates: start: 20130731
  2. IMETH [Concomitant]
     Indication: RHEUMATOID ARTHRITIS
     Dates: start: 20111201
  3. SPECIAFOLDINE [Concomitant]
     Indication: RHEUMATOID ARTHRITIS
     Dates: start: 20111201
  4. CELECOXIB [Concomitant]
     Indication: RHEUMATOID ARTHRITIS
     Dates: start: 20130526
  5. AMLOR [Concomitant]
     Indication: HYPERTENSION
     Dates: start: 20080101
  6. INIPOMP [Concomitant]
     Indication: GASTROOESOPHAGEAL REFLUX PROPHYLAXIS
     Dates: start: 20111201
  7. INIPOMP [Concomitant]
     Indication: GASTROOESOPHAGEAL REFLUX PROPHYLAXIS
  8. RIFINAH [Concomitant]
     Indication: ANTIBIOTIC PROPHYLAXIS
     Dates: start: 20130628, end: 20130930
  9. RIFINAH [Concomitant]
     Indication: MYCOBACTERIUM TUBERCULOSIS COMPLEX TEST POSITIVE

REACTIONS (2)
  - Humerus fracture [Recovered/Resolved]
  - Fall [Recovered/Resolved]
